FAERS Safety Report 5306575-2 (Version None)
Quarter: 2007Q2

REPORT INFORMATION
  Report Type: 
  Country: None (occurrence: None)
  Receive Date: 20070424
  Receipt Date: 20070413
  Transmission Date: 20071010
  Serious: Yes (Other)
  Sender: FDA-Public Use
  Company Number: SG-PFIZER INC-2007029740

PATIENT
  Age: 67 Year
  Sex: Male

DRUGS (2)
  1. PHENYTOIN [Suspect]
     Route: 048
     Dates: start: 20060705, end: 20060801
  2. BACTRIM [Suspect]
     Route: 048
     Dates: start: 20060730, end: 20060802

REACTIONS (4)
  - HEPATITIS [None]
  - HYPOTENSION [None]
  - PYREXIA [None]
  - RASH MACULO-PAPULAR [None]
